FAERS Safety Report 15195810 (Version 1)
Quarter: 2018Q3

REPORT INFORMATION
  Report Type: Spontaneous
  Country: US (occurrence: US)
  Receive Date: 20180626
  Receipt Date: 20180626
  Transmission Date: 20181010
  Serious: Yes (Disabling)
  Sender: FDA-Public Use
  Company Number: None

PATIENT
  Age: 83 Year
  Sex: Female
  Weight: 61.23 kg

DRUGS (4)
  1. CIPROFLOXACIN (FLUORIOQUINOLONE ANTIBIOTIC) [Suspect]
     Active Substance: CIPROFLOXACIN HYDROCHLORIDE
     Indication: PRODUCT USED FOR UNKNOWN INDICATION
     Dosage: ?          QUANTITY:1 DF DOSAGE FORM;?
     Route: 048
     Dates: start: 20180219, end: 20180224
  2. TYLENOL [Concomitant]
     Active Substance: ACETAMINOPHEN
  3. VITAMIN D3 [Concomitant]
     Active Substance: CHOLECALCIFEROL
  4. MULTIVITAMIN GUMMY [Concomitant]

REACTIONS (11)
  - Headache [None]
  - Dizziness [None]
  - Diarrhoea [None]
  - Anxiety [None]
  - Pruritus [None]
  - Abdominal pain upper [None]
  - Tendon pain [None]
  - Pain in extremity [None]
  - Drug hypersensitivity [None]
  - Neuropathy peripheral [None]
  - Gait disturbance [None]

NARRATIVE: CASE EVENT DATE: 20180224
